FAERS Safety Report 5824665-2 (Version None)
Quarter: 2008Q3

REPORT INFORMATION
  Report Type: 
  Country: None (occurrence: None)
  Receive Date: 20080728
  Receipt Date: 20080723
  Transmission Date: 20090109
  Serious: Yes (Hospitalization, Other)
  Sender: FDA-Public Use
  Company Number: US-BRISTOL-MYERS SQUIBB COMPANY-14275267

PATIENT
  Age: 63 Year
  Sex: Male
  Weight: 87 kg

DRUGS (12)
  1. DASATINIB [Suspect]
     Indication: PROSTATE CANCER
     Dosage: DASATINIB 50MG + 20 MG
     Route: 048
     Dates: start: 20080710, end: 20080715
  2. ENTERIC ASPIRIN [Concomitant]
  3. DOCUSATE SODIUM [Concomitant]
  4. PREDNISONE [Concomitant]
  5. METOPROLOL TARTRATE [Concomitant]
  6. ACETAMINOPHEN AND HYDROCODONE BITARTRATE [Concomitant]
     Dosage: 1 DOSAGE FORM=10/235 1 TAB Q6HR PRN
  7. METFORMIN HCL [Concomitant]
  8. PROCHLORPERAZINE [Concomitant]
     Dosage: 1 TAB Q6HR PRN
  9. MORPHINE [Concomitant]
     Dosage: 60MG TID PRN
  10. ENABLEX [Concomitant]
  11. PRANDIN [Concomitant]
     Dosage: 3 TO 5 TIMES /DAY
  12. ASCORBIC ACID [Concomitant]

REACTIONS (6)
  - ANOREXIA [None]
  - DEHYDRATION [None]
  - HYPONATRAEMIA [None]
  - OVERDOSE [None]
  - PAIN [None]
  - VOMITING [None]
